FAERS Safety Report 9025141 (Version 1)
Quarter: 2013Q1

REPORT INFORMATION
  Report Type: Other
  Country: GB (occurrence: NZ)
  Receive Date: 20130122
  Receipt Date: 20130122
  Transmission Date: 20140127
  Serious: Yes (Hospitalization)
  Sender: FDA-Public Use
  Company Number: GB-WATSON-2013-00679

PATIENT
  Age: 56 Year
  Sex: Male
  Weight: 90 kg

DRUGS (14)
  1. DOXORUBICIN [Suspect]
     Indication: B-CELL LYMPHOMA
     Dosage: UNKNOWN
     Route: 065
  2. PREDNISONE (UNKNOWN) [Suspect]
     Indication: B-CELL LYMPHOMA
     Dosage: UNKNOWN
     Route: 065
  3. VINCRISTINE SULFATE [Suspect]
     Indication: B-CELL LYMPHOMA
     Dosage: UNKNOWN
     Route: 065
  4. RITUXIMAB [Suspect]
     Indication: B-CELL LYMPHOMA
     Dosage: 800MG ONCE EVERY 3 WEEKS
     Route: 042
     Dates: start: 20121120
  5. CYCLOPHOSPHAMIDE [Suspect]
     Indication: B-CELL LYMPHOMA
     Dosage: UNKNOWN
     Route: 065
  6. PARACETAMOL [Concomitant]
     Indication: PRODUCT USED FOR UNKNOWN INDICATION
     Dosage: UNKNOWN
     Route: 065
     Dates: start: 20121120
  7. ZOPICLONE [Concomitant]
     Indication: INSOMNIA
     Dosage: UNK
     Route: 065
  8. CETIRIZINE HYDROCHLORIDE [Concomitant]
     Indication: SEASONAL ALLERGY
     Dosage: UNKNOWN
     Route: 065
  9. ALLOPURINOL [Concomitant]
     Indication: GOUT
     Dosage: UNKNOWN
     Route: 065
     Dates: start: 20121116
  10. OMEPRAZOLE [Concomitant]
     Indication: PRODUCT USED FOR UNKNOWN INDICATION
     Dosage: UNKNOWN
     Route: 065
     Dates: start: 20121121
  11. DOMPERIDONE [Concomitant]
     Indication: NAUSEA
     Dosage: UNKNOWN
     Route: 065
     Dates: start: 20121120
  12. PROMETHAZINE [Concomitant]
     Indication: NAUSEA
     Dosage: UNKNOWN
     Route: 042
     Dates: start: 20121120
  13. ONDANSETRON [Concomitant]
     Indication: NAUSEA
     Dosage: UNKNOWN
     Route: 065
     Dates: start: 20121120
  14. NAPROXEN [Concomitant]
     Indication: BACK PAIN
     Dosage: UNKNOWN
     Route: 065

REACTIONS (1)
  - Febrile neutropenia [Recovered/Resolved]
